FAERS Safety Report 7108652-2 (Version None)
Quarter: 2010Q4

REPORT INFORMATION
  Report Type: 
  Country: None (occurrence: None)
  Receive Date: 20101117
  Receipt Date: 20101108
  Transmission Date: 20110411
  Serious: Yes (Life-Threatening, Hospitalization, Disabling)
  Sender: FDA-Public Use
  Company Number: US-JNJFOC-20090201297

PATIENT
  Sex: Female
  Weight: 22.23 kg

DRUGS (3)
  1. CHILDREN'S MOTRIN [Suspect]
     Indication: PAIN
  2. CHILDREN'S TYLENOL SUSPENSION [Suspect]
  3. CHILDREN'S TYLENOL SUSPENSION [Suspect]
     Indication: PAIN

REACTIONS (2)
  - BLINDNESS [None]
  - TOXIC EPIDERMAL NECROLYSIS [None]
